FAERS Safety Report 19025748 (Version 7)
Quarter: 2022Q1

REPORT INFORMATION
  Report Type: Spontaneous
  Country: US (occurrence: US)
  Receive Date: 20210318
  Receipt Date: 20220323
  Transmission Date: 20220423
  Serious: Yes (Other)
  Sender: FDA-Public Use
  Company Number: US-SA-2021SA088679

PATIENT
  Age: 44 Year
  Sex: Female

DRUGS (2)
  1. FABRAZYME [Suspect]
     Active Substance: AGALSIDASE BETA
     Indication: Fabry^s disease
     Dosage: 70 MG, QOW
     Route: 042
     Dates: start: 20210122, end: 20211030
  2. FABRAZYME [Suspect]
     Active Substance: AGALSIDASE BETA
     Dosage: 20 MG, QOW
     Route: 042
     Dates: start: 2021

REACTIONS (9)
  - Facial paralysis [Unknown]
  - Cyst [Unknown]
  - Hypersensitivity [Recovered/Resolved]
  - Weight decreased [Unknown]
  - Hysterectomy [Unknown]
  - Product dose omission issue [Unknown]
  - Dysphemia [Unknown]
  - Blepharospasm [Unknown]
  - Chest discomfort [Unknown]

NARRATIVE: CASE EVENT DATE: 20210307
